FAERS Safety Report 5564072-3 (Version None)
Quarter: 2007Q4

REPORT INFORMATION
  Report Type: 
  Country: None (occurrence: None)
  Receive Date: 20071217
  Receipt Date: 20071203
  Transmission Date: 20080405
  Serious: Yes (Other)
  Sender: FDA-Public Use
  Company Number: GB-RANBAXY-2007RR-11833

PATIENT

DRUGS (1)
  1. GABAPENTIN BASICS B 600MG FILMTABLETTEN [Suspect]
     Indication: NEURALGIA
     Dosage: UNK
     Dates: start: 20000101

REACTIONS (2)
  - ALANINE AMINOTRANSFERASE INCREASED [None]
  - HEPATITIS [None]
